FAERS Safety Report 8443239-0 (Version None)
Quarter: 2012Q2

REPORT INFORMATION
  Report Type: 
  Country: None (occurrence: None)
  Receive Date: 20120617
  Receipt Date: 20120605
  Transmission Date: 20120825
  Serious: Yes (Death, Other)
  Sender: FDA-Public Use
  Company Number: US-BRISTOL-MYERS SQUIBB COMPANY-16666521

PATIENT
  Age: 5 Year
  Sex: Female

DRUGS (3)
  1. MITOTANE [Suspect]
     Indication: METASTASES TO LIVER
     Dosage: INCREASED TO 5MG. TABLETS
     Route: 048
  2. FLUDROCORTISONE ACETATE [Concomitant]
     Dosage: 9 ALPHA FLUOROCORTISOL
  3. PREDNISOLONE [Concomitant]

REACTIONS (6)
  - VOMITING [None]
  - ATAXIA [None]
  - SOMNOLENCE [None]
  - SUDDEN DEATH [None]
  - DECREASED APPETITE [None]
  - ELECTROENCEPHALOGRAM ABNORMAL [None]
